FAERS Safety Report 13879620 (Version 2)
Quarter: 2018Q2

REPORT INFORMATION
  Report Type: Spontaneous
  Country: US (occurrence: US)
  Receive Date: 20170818
  Receipt Date: 20180412
  Transmission Date: 20180711
  Serious: Yes (Death, Other)
  Sender: FDA-Public Use
  Company Number: US-BRISTOL-MYERS SQUIBB COMPANY-BMS-2017-073001

PATIENT
  Age: 48 Year
  Sex: Male
  Weight: 128.8 kg

DRUGS (1)
  1. YERVOY [Suspect]
     Active Substance: IPILIMUMAB
     Indication: MALIGNANT MELANOMA
     Dosage: 1329 MG, Q3WK
     Route: 042
     Dates: start: 20170320, end: 20170602

REACTIONS (1)
  - Death [Fatal]

NARRATIVE: CASE EVENT DATE: 20170613
